FAERS Safety Report 8399159-3 (Version None)
Quarter: 2012Q2

REPORT INFORMATION
  Report Type: 
  Country: None (occurrence: None)
  Receive Date: 20120323
  Receipt Date: 20111110
  Transmission Date: 20120825
  Serious: Yes (Hospitalization, Other)
  Sender: FDA-Public Use
  Company Number: 163-21880-11061687

PATIENT
  Age: 71 Year
  Sex: Male

DRUGS (4)
  1. REVLIMID [Suspect]
  2. REVLIMID [Suspect]
     Indication: MYELODYSPLASTIC SYNDROME
     Dosage: 10 MG, 1 IN 1 D, PO, 5 MG, QOD, PO , 5 MG, DAILY FOR 21 DAYS ON FF BY 7 DAYS OFF, PO
     Route: 048
     Dates: start: 20110501
  3. REVLIMID [Suspect]
     Indication: MYELODYSPLASTIC SYNDROME
     Dosage: 10 MG, 1 IN 1 D, PO, 5 MG, QOD, PO , 5 MG, DAILY FOR 21 DAYS ON FF BY 7 DAYS OFF, PO
     Route: 048
     Dates: start: 20110331
  4. REVLIMID [Suspect]
     Indication: MYELODYSPLASTIC SYNDROME
     Dosage: 10 MG, 1 IN 1 D, PO, 5 MG, QOD, PO , 5 MG, DAILY FOR 21 DAYS ON FF BY 7 DAYS OFF, PO
     Route: 048
     Dates: start: 20111016, end: 20111106

REACTIONS (6)
  - DIZZINESS [None]
  - FATIGUE [None]
  - PLATELET COUNT DECREASED [None]
  - ASTHENIA [None]
  - HAEMOGLOBIN DECREASED [None]
  - MUSCLE SPASMS [None]
